FAERS Safety Report 14650896 (Version 2)
Quarter: 2018Q1

REPORT INFORMATION
  Report Type: Spontaneous
  Country: ES (occurrence: ES)
  Receive Date: 20180316
  Receipt Date: 20180327
  Transmission Date: 20180509
  Serious: Yes (Other)
  Sender: FDA-Public Use
  Company Number: ES-TEVA-2018-ES-868207

PATIENT
  Age: 92 Year
  Sex: Female

DRUGS (7)
  1. ACENOCUMAROL [Interacting]
     Active Substance: ACENOCOUMAROL
     Indication: ATRIAL FIBRILLATION
     Dosage: 0.25 MG EVERY 24 HOURS WITH SUBSEQUENT INCREASE TO 0.5 MG EVERY 24 HOURS ON 01/26/20172017
     Route: 048
  2. AMOXICILINA/ACIDO CLAVULANICO [Suspect]
     Active Substance: AMOXICILLIN\CLAVULANATE POTASSIUM
     Indication: PNEUMONIA
     Dosage: 1 GR EVERY 8 HOURS WITH IRREGULAR DOSE CHANGES TO 875 MG EVERY 8 HOURS
  3. AMBROXOL (453A) [Concomitant]
     Dosage: 15 MG EVERY 8 HOURS
  4. PARACETAMOL (12A) [Concomitant]
     Active Substance: ACETAMINOPHEN
     Dosage: 1 GR EVERY 8 HOURS
  5. LORAZEPAM (1864A) [Concomitant]
     Dosage: 1 MG EVERY 24 HOURS
  6. DIGOXINA (770A) [Concomitant]
     Dosage: 0,125 MG EVERY 24 HOURS
  7. PANTOPRAZOL (7275A) [Concomitant]
     Active Substance: PANTOPRAZOLE
     Dosage: 20 MG EVERY 24 HOURS

REACTIONS (2)
  - Drug interaction [Unknown]
  - Hypocoagulable state [Recovered/Resolved]
